FAERS Safety Report 7768201-2 (Version None)
Quarter: 2011Q3

REPORT INFORMATION
  Report Type: 
  Country: None (occurrence: None)
  Receive Date: 20110922
  Receipt Date: 20110922
  Transmission Date: 20111222
  Serious: Yes (Other)
  Sender: FDA-Public Use
  Company Number: None

PATIENT
  Age: 54 Year
  Sex: Female
  Weight: 54.431 kg

DRUGS (2)
  1. LEVAQUIN [Suspect]
     Indication: CYSTITIS
     Dosage: 1 PILL 500 MG
     Route: 048
     Dates: start: 20110920, end: 20110921
  2. LEVAQUIN [Suspect]
     Indication: SINUSITIS
     Dosage: 1 PILL 500 MG
     Route: 048
     Dates: start: 20110920, end: 20110921

REACTIONS (3)
  - MOVEMENT DISORDER [None]
  - MYALGIA [None]
  - MUSCLE SPASMS [None]
